FAERS Safety Report 11428432 (Version 1)
Quarter: 2015Q3

REPORT INFORMATION
  Report Type: Spontaneous
  Country: US (occurrence: None)
  Receive Date: 20150827
  Receipt Date: 20150827
  Transmission Date: 20151125
  Serious: Yes (Hospitalization)
  Sender: FDA-Public Use
  Company Number: None

PATIENT
  Age: 61 Year
  Sex: Male
  Weight: 95.26 kg

DRUGS (4)
  1. MUCINEX [Suspect]
     Active Substance: GUAIFENESIN
     Indication: COUGH
     Dosage: 1 PILL
     Route: 048
     Dates: start: 20150810, end: 20150825
  2. CRESTOR [Concomitant]
     Active Substance: ROSUVASTATIN CALCIUM
  3. TOPROL XL [Concomitant]
     Active Substance: METOPROLOL SUCCINATE
  4. LISINOPRIL. [Concomitant]
     Active Substance: LISINOPRIL

REACTIONS (1)
  - Vertigo [None]

NARRATIVE: CASE EVENT DATE: 20150825
